FAERS Safety Report 8799429 (Version 1)
Quarter: 2012Q4

REPORT INFORMATION
  Report Type: Spontaneous
  Country: GB (occurrence: None)
  Receive Date: 20120914
  Receipt Date: 20120914
  Transmission Date: 20130627
  Serious: Yes (Other)
  Sender: FDA-Public Use
  Company Number: GB-DEXPHARM-20121198

PATIENT
  Age: 61 Year
  Sex: Male

DRUGS (3)
  1. OMEPRAZOLE [Suspect]
  2. GLUCOPHAGE [Concomitant]
  3. INSULIN [Concomitant]

REACTIONS (1)
  - Type 2 diabetes mellitus [None]
